FAERS Safety Report 8611585-3 (Version None)
Quarter: 2012Q3

REPORT INFORMATION
  Report Type: 
  Country: None (occurrence: None)
  Receive Date: 20120822
  Receipt Date: 20120815
  Transmission Date: 20120928
  Serious: Yes (Hospitalization, Other)
  Sender: FDA-Public Use
  Company Number: PHHY2012CA062760

PATIENT
  Sex: Male

DRUGS (3)
  1. LUVOX [Concomitant]
  2. PALIPERIDONE PALMITATE [Concomitant]
     Dosage: 150 MG IM Q MONTHLY
     Route: 030
  3. CLOZARIL [Suspect]
     Indication: SCHIZOPHRENIA
     Dosage: 150 MG QHS
     Route: 048
     Dates: start: 20100224

REACTIONS (3)
  - HYPERSOMNIA [None]
  - DEHYDRATION [None]
  - PULMONARY EMBOLISM [None]
